FAERS Safety Report 7205957-1 (Version None)
Quarter: 2011Q1

REPORT INFORMATION
  Report Type: 
  Country: None (occurrence: None)
  Receive Date: 20110103
  Receipt Date: 20101223
  Transmission Date: 20110831
  Serious: No
  Sender: FDA-Public Use
  Company Number: US-BIOGENIDEC-2010BI038694

PATIENT
  Age: 48 Year
  Sex: Female

DRUGS (1)
  1. TYSABRI [Suspect]
     Indication: MULTIPLE SCLEROSIS
     Route: 042
     Dates: start: 20100318

REACTIONS (9)
  - BRONCHITIS [None]
  - SPUTUM DISCOLOURED [None]
  - SINUSITIS [None]
  - COUGH [None]
  - OROPHARYNGEAL PAIN [None]
  - UPPER-AIRWAY COUGH SYNDROME [None]
  - CHILLS [None]
  - CHEST DISCOMFORT [None]
  - CANDIDIASIS [None]
